FAERS Safety Report 6166885-6 (Version None)
Quarter: 2009Q2

REPORT INFORMATION
  Report Type: 
  Country: None (occurrence: None)
  Receive Date: 20090424
  Receipt Date: 20090420
  Transmission Date: 20091009
  Serious: Yes (Hospitalization)
  Sender: FDA-Public Use
  Company Number: B0567245A

PATIENT
  Sex: Female

DRUGS (2)
  1. ALKERAN [Suspect]
     Indication: MULTIPLE MYELOMA
     Dosage: 100MG PER DAY
     Route: 042
     Dates: start: 20081217, end: 20081217
  2. JANUVIA [Concomitant]

REACTIONS (1)
  - PNEUMONIA [None]
